FAERS Safety Report 4599389-2 (Version None)
Quarter: 2005Q1

REPORT INFORMATION
  Report Type: 
  Country: None (occurrence: None)
  Receive Date: 20050302
  Receipt Date: 20050302
  Transmission Date: 20050727
  Serious: Yes (Death)
  Sender: FDA-Public Use
  Company Number: None

PATIENT
  Age: 72 Year
  Sex: Male

DRUGS (4)
  1. DOCETAXEL [Suspect]
     Indication: NON-SMALL CELL LUNG CANCER
     Dosage: 36 MG/M2 IV D1,8, 15
     Route: 042
     Dates: start: 20050124
  2. DOCETAXEL [Suspect]
     Indication: NON-SMALL CELL LUNG CANCER
     Dosage: 36 MG/M2 IV D1,8, 15
     Route: 042
     Dates: start: 20050131
  3. DOCETAXEL [Suspect]
     Indication: NON-SMALL CELL LUNG CANCER
     Dosage: 36 MG/M2 IV D1,8, 15
     Route: 042
     Dates: start: 20050207
  4. IRESSA [Suspect]
     Indication: NON-SMALL CELL LUNG CANCER
     Dosage: 250 MG PO QD
     Route: 048
     Dates: start: 20050124, end: 20050228

REACTIONS (2)
  - HYPOTENSION [None]
  - PNEUMONIA [None]
